FAERS Safety Report 24183102 (Version 1)
Quarter: 2024Q3

REPORT INFORMATION
  Report Type: Other
  Country: IN (occurrence: IN)
  Receive Date: 20240807
  Receipt Date: 20240807
  Transmission Date: 20241017
  Serious: Yes (Other)
  Sender: ALVOGEN
  Company Number: IN-ALVOGEN-2024095213

PATIENT
  Age: 41 Year
  Sex: Male

DRUGS (1)
  1. DISULFIRAM [Suspect]
     Active Substance: DISULFIRAM
     Indication: Alcoholism

REACTIONS (1)
  - Generalised tonic-clonic seizure [Recovered/Resolved]
